FAERS Safety Report 9469110 (Version 3)
Quarter: 2013Q4

REPORT INFORMATION
  Report Type: Spontaneous
  Country: GB (occurrence: GB)
  Receive Date: 20130821
  Receipt Date: 20131127
  Transmission Date: 20140711
  Serious: Yes (Hospitalization)
  Sender: FDA-Public Use
  Company Number: GB-PFIZER INC-2013236516

PATIENT
  Age: 44 Year
  Sex: Female

DRUGS (18)
  1. DOCETAXEL [Suspect]
     Indication: HER-2 POSITIVE BREAST CANCER
     Dosage: 150 MG, EVERY 3 WEEKS
     Route: 042
     Dates: start: 20121009
  2. PACLITAXEL [Suspect]
     Indication: HER-2 POSITIVE BREAST CANCER
     Dosage: 160 MG, 1X/DAY
     Route: 065
     Dates: start: 20130621
  3. PERTUZUMAB [Concomitant]
     Indication: HER-2 POSITIVE BREAST CANCER
     Dosage: 840 MG, SINGLE
     Route: 042
     Dates: start: 20121008, end: 20121008
  4. PERTUZUMAB [Concomitant]
     Dosage: 420 MG, EVERY 3 WEEKS
     Route: 042
     Dates: start: 20130621, end: 20130711
  5. TRASTUZUMAB [Concomitant]
     Indication: HER-2 POSITIVE BREAST CANCER
     Dosage: 546 MG, EVERY 3 WEEKS
     Route: 042
     Dates: start: 20121008
  6. TRASTUZUMAB [Concomitant]
     Dosage: 480 MG, EVERY 3 WEEKS
     Route: 042
     Dates: start: 20130621, end: 20130711
  7. IBANDRONIC ACID [Concomitant]
     Dosage: UNK
     Dates: start: 20120614
  8. LANSOPRAZOLE [Concomitant]
     Dosage: UNK
     Dates: start: 20130530
  9. FUROSEMIDE [Concomitant]
     Dosage: UNK
     Dates: start: 20130328
  10. DEXAMETASON [Concomitant]
     Dosage: UNK
     Dates: start: 20130710, end: 20130712
  11. BRUFEN [Concomitant]
     Dosage: 1 IN 1 AS REQUIRED
     Dates: start: 20121122
  12. GASTROCOTE [Concomitant]
     Dosage: 1 IN 1 AS REQUIRED
     Dates: start: 20130417
  13. METHYLPREDNISOLONE [Concomitant]
     Dates: start: 20130713, end: 20130715
  14. LOPERAMIDE [Concomitant]
     Dates: start: 20130715
  15. BEMIPARIN SODIUM [Concomitant]
     Dates: start: 20130715, end: 20130718
  16. PARACETAMOL [Concomitant]
     Dosage: UNK
     Dates: start: 20130717
  17. RANITIDINE [Concomitant]
     Dates: start: 20130718, end: 20130718
  18. DEXCHLORPHENIRAMINE [Concomitant]
     Dates: start: 20130718, end: 20130718

REACTIONS (2)
  - Neutropenic sepsis [Recovered/Resolved]
  - Dyspnoea [Recovered/Resolved]
